FAERS Safety Report 8772401 (Version 1)
Quarter: 2012Q4

REPORT INFORMATION
  Report Type: 
  Country: BR (occurrence: BR)
  Receive Date: 20120905
  Receipt Date: 20120905
  Transmission Date: 20130627
  Serious: Yes (Other)
  Sender: FDA-Public Use
  Company Number: PHHY2012BR076153

PATIENT
  Age: 61 Year
  Sex: Female

DRUGS (3)
  1. ZOLEDRONIC ACID [Suspect]
     Indication: OSTEITIS DEFORMANS
     Dosage: 4 mg, UNK
  2. VITAMIN D [Concomitant]
  3. CALCIUM [Concomitant]

REACTIONS (6)
  - Intracranial pressure increased [Unknown]
  - Hypocalcaemia [Unknown]
  - Agitation [Unknown]
  - Disorientation [Unknown]
  - Urinary incontinence [Unknown]
  - Confusional state [Unknown]
